FAERS Safety Report 4281466-7 (Version None)
Quarter: 2004Q1

REPORT INFORMATION
  Report Type: 
  Country: None (occurrence: None)
  Receive Date: 20040120
  Receipt Date: 20031119
  Transmission Date: 20041129
  Serious: No
  Sender: FDA-Public Use
  Company Number: 2003-11-1795

PATIENT
  Age: 13 Year
  Sex: Female

DRUGS (1)
  1. CLARINEX [Suspect]
     Route: 048

REACTIONS (1)
  - BREAST CYST [None]
